FAERS Safety Report 12924281 (Version 1)
Quarter: 2016Q4

REPORT INFORMATION
  Report Type: Spontaneous
  Country: CL (occurrence: CL)
  Receive Date: 20161108
  Receipt Date: 20161108
  Transmission Date: 20170207
  Serious: Yes (Death)
  Sender: FDA-Public Use
  Company Number: CL-SA-2016SA202635

PATIENT
  Sex: Female

DRUGS (1)
  1. APROVEL [Suspect]
     Active Substance: IRBESARTAN
     Route: 048

REACTIONS (1)
  - Death [Fatal]
